FAERS Safety Report 14652330 (Version 1)
Quarter: 2018Q1

REPORT INFORMATION
  Report Type: Spontaneous
  Country: US (occurrence: US)
  Receive Date: 20180316
  Receipt Date: 20180316
  Transmission Date: 20180509
  Serious: Yes (Hospitalization)
  Sender: FDA-Public Use
  Company Number: None

PATIENT
  Age: 54 Year
  Sex: Female
  Weight: 81.7 kg

DRUGS (2)
  1. GEMCITABINE HYDROCHLORIDE. [Suspect]
     Active Substance: GEMCITABINE HYDROCHLORIDE
     Dates: end: 20180226
  2. CISPLATIN. [Suspect]
     Active Substance: CISPLATIN
     Dates: end: 20180226

REACTIONS (9)
  - Hypomagnesaemia [None]
  - Hyponatraemia [None]
  - Chronic obstructive pulmonary disease [None]
  - Squamous cell carcinoma [None]
  - Febrile neutropenia [None]
  - Hypokalaemia [None]
  - Dehydration [None]
  - Pulmonary embolism [None]
  - Atrial fibrillation [None]

NARRATIVE: CASE EVENT DATE: 20180305
